FAERS Safety Report 4333620-3 (Version None)
Quarter: 2004Q2

REPORT INFORMATION
  Report Type: 
  Country: None (occurrence: None)
  Receive Date: 20040402
  Receipt Date: 20040326
  Transmission Date: 20050107
  Serious: No
  Sender: FDA-Public Use
  Company Number: 2004UW06060

PATIENT
  Age: 24 Year

DRUGS (3)
  1. SEROQUEL [Suspect]
  2. PAXIL [Suspect]
  3. TYLENOL W/ CODEINE [Suspect]

REACTIONS (2)
  - MALAISE [None]
  - MULTIPLE DRUG OVERDOSE [None]
